FAERS Safety Report 13410103 (Version 2)
Quarter: 2025Q4

REPORT INFORMATION
  Report Type: Report from Study
  Country: EU (occurrence: None)
  Receive Date: 20170406
  Receipt Date: 20251203
  Transmission Date: 20260118
  Serious: Yes (Life-Threatening, Other)
  Sender: AUROBINDO
  Company Number: EU-AUROBINDO-AUR-APL-2017-32148

PATIENT
  Age: 53 Year
  Sex: Female

DRUGS (4)
  1. RIBAVIRIN [Interacting]
     Active Substance: RIBAVIRIN
     Indication: Hepatitis C
     Dosage: UNK
     Route: 065
  2. SOFOSBUVIR [Interacting]
     Active Substance: SOFOSBUVIR
     Indication: Hepatitis C
     Route: 065
  3. SIMEPREVIR [Interacting]
     Active Substance: SIMEPREVIR
     Indication: Hepatitis C
     Dosage: UNK
     Route: 065
  4. DACLATASVIR [Interacting]
     Active Substance: DACLATASVIR
     Indication: Hepatitis C
     Dosage: UNK
     Route: 065

REACTIONS (3)
  - Haematotoxicity [Unknown]
  - Anaemia [Unknown]
  - Drug interaction [Unknown]
